FAERS Safety Report 6717685-7 (Version None)
Quarter: 2010Q2

REPORT INFORMATION
  Report Type: 
  Country: None (occurrence: None)
  Receive Date: 20100503
  Receipt Date: 20100420
  Transmission Date: 20101027
  Serious: Yes (Hospitalization)
  Sender: FDA-Public Use
  Company Number: 7002280

PATIENT
  Age: 53 Year
  Sex: Female

DRUGS (1)
  1. REBIF [Suspect]
     Indication: MULTIPLE SCLEROSIS
     Dosage: 44 MCG, 3 IN 1 WK SUBSUTANEOUS
     Route: 058
     Dates: start: 20090625

REACTIONS (5)
  - CONDITION AGGRAVATED [None]
  - FEELING HOT [None]
  - HOT FLUSH [None]
  - MULTIPLE SCLEROSIS [None]
  - PNEUMONIA [None]
